FAERS Safety Report 24562745 (Version 1)
Quarter: 2024Q4

REPORT INFORMATION
  Report Type: Other
  Country: JP (occurrence: JP)
  Receive Date: 20241029
  Receipt Date: 20241029
  Transmission Date: 20250115
  Serious: Yes (Other)
  Sender: BIONPHARMA INC.
  Company Number: JP-Bion-014170

PATIENT
  Age: 73 Year
  Sex: Male

DRUGS (7)
  1. DEXAMETHASONE [Suspect]
     Active Substance: DEXAMETHASONE
     Indication: Lymphoma
  2. OXYCODONE [Concomitant]
     Active Substance: OXYCODONE
     Indication: Tumour pain
  3. TAPENTADOL [Concomitant]
     Active Substance: TAPENTADOL
     Indication: Tumour pain
  4. PREGABALIN [Concomitant]
     Active Substance: PREGABALIN
     Indication: Tumour pain
  5. GEMCITABINE [Concomitant]
     Active Substance: GEMCITABINE
     Indication: Lymphoma
  6. CARBOPLATIN [Concomitant]
     Active Substance: CARBOPLATIN
     Indication: Lymphoma
  7. RITUXIMAB [Concomitant]
     Active Substance: RITUXIMAB
     Indication: Lymphoma

REACTIONS (2)
  - Myelosuppression [Recovering/Resolving]
  - Delirium [Recovering/Resolving]
